FAERS Safety Report 21475856 (Version 5)
Quarter: 2022Q4

REPORT INFORMATION
  Report Type: Report from Study
  Country: US (occurrence: US)
  Receive Date: 20221019
  Receipt Date: 20221216
  Transmission Date: 20230112
  Serious: Yes (Other)
  Sender: FDA-Public Use
  Company Number: US-NOVARTISTESTPH-NVSC2022US234644

PATIENT
  Sex: Male

DRUGS (2)
  1. ENTRESTO [Suspect]
     Active Substance: SACUBITRIL\VALSARTAN
     Indication: Cardiac valve disease
     Dosage: 1 DOSAGE FORM (24/26 MG), BID
     Route: 065
  2. ENTRESTO [Suspect]
     Active Substance: SACUBITRIL\VALSARTAN
     Dosage: 1 DOSAGE FORM (49/51 MG), BID
     Route: 065

REACTIONS (4)
  - Atrial flutter [Unknown]
  - Weight fluctuation [Unknown]
  - Asthenia [Unknown]
  - Product use in unapproved indication [Unknown]
